FAERS Safety Report 10257444 (Version 1)
Quarter: 2014Q2

REPORT INFORMATION
  Report Type: Spontaneous
  Country: CZ (occurrence: None)
  Receive Date: 20140620
  Receipt Date: 20140620
  Transmission Date: 20141212
  Serious: Yes (Hospitalization)
  Sender: FDA-Public Use
  Company Number: CZ-016040

PATIENT
  Age: 40 Year
  Sex: Male
  Weight: 79 kg

DRUGS (1)
  1. PICOPREP (PICOPREP) (NOT SPECIFIED) [Suspect]
     Indication: BOWEL PREPARATION
     Dosage: 2 SACHETS
     Route: 048
     Dates: start: 20140521, end: 20140522

REACTIONS (8)
  - Nausea [None]
  - Muscular weakness [None]
  - Paraesthesia [None]
  - Presyncope [None]
  - Electrolyte imbalance [None]
  - Diarrhoea [None]
  - Defaecation urgency [None]
  - Laboratory test abnormal [None]
